FAERS Safety Report 9851990 (Version 1)
Quarter: 2014Q1

REPORT INFORMATION
  Report Type: Spontaneous
  Country: BR (occurrence: None)
  Receive Date: 20140127
  Receipt Date: 20140127
  Transmission Date: 20141002
  Serious: Yes (Death)
  Sender: FDA-Public Use
  Company Number: B0962701A

PATIENT
  Sex: 0

DRUGS (4)
  1. ETOPOSIDE [Suspect]
     Indication: LYMPHOMA
     Dosage: 1 G/M2
  2. ALKERAN (MELPHALAN HYDROCHLORIDE) [Suspect]
     Indication: LYMPHOMA
  3. LOMUSTINE [Suspect]
     Indication: LYMPHOMA
  4. CYTARABINE [Suspect]
     Indication: LYMPHOMA

REACTIONS (2)
  - Sepsis [None]
  - Toxicity to various agents [None]
